FAERS Safety Report 14850083 (Version 1)
Quarter: 2018Q2

REPORT INFORMATION
  Report Type: Spontaneous
  Country: CA (occurrence: CA)
  Receive Date: 20180504
  Receipt Date: 20180504
  Transmission Date: 20180711
  Serious: Yes (Hospitalization)
  Sender: FDA-Public Use
  Company Number: CA-TEVA-2018-CA-887834

PATIENT
  Age: 79 Year
  Sex: Male

DRUGS (20)
  1. ASA [Concomitant]
     Active Substance: ASPIRIN
  2. NOVORAPID [Concomitant]
     Active Substance: INSULIN ASPART
     Route: 058
  3. ROSUVASTATIN. [Suspect]
     Active Substance: ROSUVASTATIN
     Indication: DIABETES MELLITUS
  4. ATROVENT [Concomitant]
     Active Substance: IPRATROPIUM BROMIDE
  5. PREGABALIN. [Concomitant]
     Active Substance: PREGABALIN
  6. AMIODARONE [Concomitant]
     Active Substance: AMIODARONE
  7. ROSUVASTATIN. [Suspect]
     Active Substance: ROSUVASTATIN
     Indication: DYSLIPIDAEMIA
     Route: 048
  8. ROSUVASTATIN. [Suspect]
     Active Substance: ROSUVASTATIN
     Indication: ARTERIOSCLEROSIS CORONARY ARTERY
  9. COVERSYL [Concomitant]
     Active Substance: PERINDOPRIL
  10. LEVEMIR [Concomitant]
     Active Substance: INSULIN DETEMIR
     Route: 058
  11. VITAMIN D [Concomitant]
     Active Substance: CHOLECALCIFEROL
  12. BISOPROLOL [Concomitant]
     Active Substance: BISOPROLOL
  13. DEXILANT [Concomitant]
     Active Substance: DEXLANSOPRAZOLE
  14. FUROSEMIDE. [Concomitant]
     Active Substance: FUROSEMIDE
  15. IRON [Concomitant]
     Active Substance: IRON
  16. PREDNISONE. [Concomitant]
     Active Substance: PREDNISONE
  17. SPIRIVA [Concomitant]
     Active Substance: TIOTROPIUM BROMIDE MONOHYDRATE
  18. ELIQUIS [Concomitant]
     Active Substance: APIXABAN
  19. FLOVENT [Concomitant]
     Active Substance: FLUTICASONE PROPIONATE
  20. SENNOSIDES. [Concomitant]
     Active Substance: SENNOSIDES

REACTIONS (3)
  - Bedridden [Recovered/Resolved]
  - Muscular weakness [Recovered/Resolved]
  - Urinary retention [Recovered/Resolved]
